FAERS Safety Report 14069405 (Version 5)
Quarter: 2018Q3

REPORT INFORMATION
  Report Type: Report from Study
  Country: DE (occurrence: DE)
  Receive Date: 20171010
  Receipt Date: 20180830
  Transmission Date: 20181010
  Serious: Yes (Hospitalization)
  Sender: FDA-Public Use
  Company Number: DE-BIOGEN-2017BI00457182

PATIENT
  Age: 48 Year
  Sex: Female
  Weight: 97 kg

DRUGS (14)
  1. MOVICOL [Concomitant]
     Active Substance: POLYETHYLENE GLYCOL 3350\POTASSIUM CHLORIDE\SODIUM BICARBONATE\SODIUM CHLORIDE
     Indication: PRODUCT USED FOR UNKNOWN INDICATION
     Dosage: BAG
     Route: 065
  2. TILIDIN [Concomitant]
     Active Substance: NALOXONE HYDROCHLORIDE\TILIDINE HYDROCHLORIDE
     Indication: BACK PAIN
     Dosage: 100/8 MG
     Route: 065
     Dates: start: 201701, end: 201709
  3. TEGRETOL [Concomitant]
     Active Substance: CARBAMAZEPINE
     Indication: INTERVERTEBRAL DISC PROTRUSION
     Route: 065
     Dates: start: 20170614
  4. FLUOXETIN [Concomitant]
     Active Substance: FLUOXETINE HYDROCHLORIDE
     Indication: DEPRESSION
     Dosage: AS NEEDED
     Route: 065
  5. ATOSIL [Concomitant]
     Active Substance: PROMETHAZINE HYDROCHLORIDE
     Indication: PRODUCT USED FOR UNKNOWN INDICATION
     Dosage: 50 UP TO THRICE DAILY
     Route: 065
  6. TAVOR EXP [Concomitant]
     Indication: PRODUCT USED FOR UNKNOWN INDICATION
     Dosage: UP TO THRICE DAILY
     Route: 065
  7. QUETIAPIN [Concomitant]
     Active Substance: QUETIAPINE
     Indication: BORDERLINE PERSONALITY DISORDER
     Route: 065
  8. FORMOTEROL [Concomitant]
     Active Substance: FORMOTEROL
     Indication: PRODUCT USED FOR UNKNOWN INDICATION
     Dosage: SHOT
     Route: 065
  9. PANTOPRAZOL [Concomitant]
     Active Substance: PANTOPRAZOLE SODIUM
     Indication: PROPHYLAXIS
     Route: 065
  10. ZINBRYTA [Suspect]
     Active Substance: DACLIZUMAB
     Indication: RELAPSING-REMITTING MULTIPLE SCLEROSIS
     Route: 058
     Dates: start: 20170302, end: 20170906
  11. GABAPENTIN. [Concomitant]
     Active Substance: GABAPENTIN
     Indication: BACK PAIN
     Route: 065
     Dates: start: 201709
  12. NOVALGIN (METAMIZOLE SODIUM) [Concomitant]
     Active Substance: METAMIZOLE SODIUM
     Indication: PRODUCT USED FOR UNKNOWN INDICATION
     Dosage: UP TO THRICE DAILY
     Route: 065
  13. CARBAMAZEPIN [Concomitant]
     Active Substance: CARBAMAZEPINE
     Indication: TRIGEMINAL NEURALGIA
     Dosage: AS NEEDED
     Route: 065
     Dates: start: 201407
  14. LEUKASE KEGEL [Concomitant]
     Indication: ABDOMINAL WALL ABSCESS
     Route: 065
     Dates: start: 20170717, end: 20170726

REACTIONS (1)
  - Prurigo [Recovered/Resolved]

NARRATIVE: CASE EVENT DATE: 20170427
